FAERS Safety Report 15967984 (Version 2)
Quarter: 2019Q1

REPORT INFORMATION
  Report Type: Spontaneous
  Country: DE (occurrence: DE)
  Receive Date: 20190215
  Receipt Date: 20190226
  Transmission Date: 20190418
  Serious: Yes (Other)
  Sender: FDA-Public Use
  Company Number: DE-MYLANLABS-2019M1013923

PATIENT
  Sex: Female

DRUGS (1)
  1. METOPROLOLSUCCINAT DURA 95 MG RETARDTABLETTEN [Suspect]
     Active Substance: METOPROLOL SUCCINATE
     Indication: PRODUCT USED FOR UNKNOWN INDICATION
     Dosage: 1-0-1
     Route: 048
     Dates: start: 20190202, end: 20190207

REACTIONS (3)
  - Angina pectoris [Recovered/Resolved]
  - Bedridden [Recovered/Resolved]
  - Musculoskeletal pain [Recovered/Resolved]
